FAERS Safety Report 21159980 (Version 1)
Quarter: 2022Q3

REPORT INFORMATION
  Report Type: Other
  Country: GB (occurrence: GB)
  Receive Date: 20220802
  Receipt Date: 20220802
  Transmission Date: 20221027
  Serious: Yes (Hospitalization)
  Sender: FDA-Public Use
  Company Number: None

PATIENT
  Sex: Male

DRUGS (10)
  1. OMEPRAZOLE [Suspect]
     Active Substance: OMEPRAZOLE
     Indication: Product used for unknown indication
     Dosage: UNK
     Route: 065
  2. METFORMIN [Suspect]
     Active Substance: METFORMIN HYDROCHLORIDE
     Indication: Product used for unknown indication
     Dosage: UNK, ONE TO BE TAKEN EACH MORNING
     Route: 065
  3. DOMPERIDONE [Concomitant]
     Active Substance: DOMPERIDONE
     Indication: Product used for unknown indication
     Dosage: UNK UNK, TID, (1MG/ML ORAL SUSPENSION SUGAR FREE TWO 5ML SPOONFULS TO BE TAKEN UP TO THREE TIMES A D
     Route: 065
     Dates: start: 20211229
  4. MORPHINE [Concomitant]
     Active Substance: MORPHINE
     Indication: Product used for unknown indication
     Dosage: UNK MILLIGRAM, EVERY 12 HRS (STRENGTH: 10 MG MODIFIED-RELEASE TABLETS) TWO TO BE TAKEN EVERY 12 HOUR
     Route: 065
  5. MORPHINE [Concomitant]
     Active Substance: MORPHINE
     Dosage: UNK, QID (UNK, (STRENGTH: 10MG/5ML ORAL SOLUTION) 2.5 - 5MLS TO BE TAKEN UP TO FOUR TIMES A DAY/PRN
     Route: 065
  6. ONDANSETRON [Concomitant]
     Active Substance: ONDANSETRON
     Indication: Product used for unknown indication
     Dosage: UNK (4MG TABLETS BD/PRN 30 TABLET PRN)
     Route: 065
     Dates: start: 20211231
  7. ZOPICLONE [Concomitant]
     Active Substance: ZOPICLONE
     Indication: Product used for unknown indication
     Dosage: UNK UNK, PRN (TABLETS ONE TO BE TAKEN AT NIGHT/PRN 14 TABLET 1ON REGULAR)
     Route: 065
  8. PEPPERMINT OIL [Concomitant]
     Active Substance: PEPPERMINT OIL
     Indication: Product used for unknown indication
     Dosage: UNK UNK, TID (ONE TO BE TAKEN THREE TIMES A DAY PRN)
     Route: 065
     Dates: start: 20220221
  9. FERROUS FUMARATE [Concomitant]
     Active Substance: FERROUS FUMARATE
     Indication: Product used for unknown indication
     Dosage: UNK, TID (ONE TO BE TAKEN THREE TIMES A DAY (168 TABLET WAS TAKING AT HOME)
     Route: 065
     Dates: start: 20220208
  10. COSMOCOL [Concomitant]
     Indication: Product used for unknown indication
     Dosage: UNK, BID (1-2 TWICE DAILY 30 SACHET PRN)
     Route: 065
     Dates: start: 20211220

REACTIONS (2)
  - Blood lactic acid increased [Recovered/Resolved]
  - Hypomagnesaemia [Recovered/Resolved]
